FAERS Safety Report 11621522 (Version 2)
Quarter: 2016Q2

REPORT INFORMATION
  Report Type: Spontaneous
  Country: CA (occurrence: CA)
  Receive Date: 20151013
  Receipt Date: 20160618
  Transmission Date: 20160815
  Serious: Yes (Other)
  Sender: FDA-Public Use
  Company Number: CA-ABBVIE-15K-028-1477279-00

PATIENT
  Age: 60 Year
  Sex: Female

DRUGS (21)
  1. HUMIRA [Suspect]
     Active Substance: ADALIMUMAB
     Route: 058
     Dates: start: 201503, end: 201505
  2. ARAVA [Suspect]
     Active Substance: LEFLUNOMIDE
     Indication: RHEUMATOID ARTHRITIS
     Route: 065
  3. FLAGYL [Suspect]
     Active Substance: METRONIDAZOLE\METRONIDAZOLE HYDROCHLORIDE
     Indication: PRODUCT USED FOR UNKNOWN INDICATION
     Route: 065
  4. ERYTHROMYCIN. [Suspect]
     Active Substance: ERYTHROMYCIN
     Indication: PRODUCT USED FOR UNKNOWN INDICATION
     Route: 065
  5. CECLOR [Suspect]
     Active Substance: CEFACLOR
     Indication: PRODUCT USED FOR UNKNOWN INDICATION
     Route: 065
  6. METHOTREXATE [Suspect]
     Active Substance: METHOTREXATE
     Route: 050
  7. CEFACLOR. [Suspect]
     Active Substance: CEFACLOR
     Indication: PRODUCT USED FOR UNKNOWN INDICATION
     Route: 065
  8. ARTHROTEC [Suspect]
     Active Substance: DICLOFENAC SODIUM\MISOPROSTOL
     Indication: RHEUMATOID ARTHRITIS
     Route: 065
  9. LEVOFLOXACIN. [Suspect]
     Active Substance: LEVOFLOXACIN
     Indication: PRODUCT USED FOR UNKNOWN INDICATION
     Route: 065
  10. LYRICA [Suspect]
     Active Substance: PREGABALIN
     Indication: PRODUCT USED FOR UNKNOWN INDICATION
     Route: 065
  11. CELEBREX [Suspect]
     Active Substance: CELECOXIB
     Indication: PRODUCT USED FOR UNKNOWN INDICATION
     Route: 048
  12. DEMEROL [Suspect]
     Active Substance: MEPERIDINE HYDROCHLORIDE
     Indication: RHEUMATOID ARTHRITIS
     Route: 065
  13. LEFLUNOMIDE. [Suspect]
     Active Substance: LEFLUNOMIDE
     Indication: PRODUCT USED FOR UNKNOWN INDICATION
     Route: 065
  14. NORFLOXACIN [Suspect]
     Active Substance: NORFLOXACIN
     Indication: PRODUCT USED FOR UNKNOWN INDICATION
     Route: 065
  15. PLAQUENIL [Suspect]
     Active Substance: HYDROXYCHLOROQUINE SULFATE
     Indication: RHEUMATOID ARTHRITIS
     Route: 065
  16. SULFASALAZINE. [Suspect]
     Active Substance: SULFASALAZINE
     Indication: RHEUMATOID ARTHRITIS
     Route: 065
  17. ERYTHROMYCIN ESTOLATE. [Suspect]
     Active Substance: ERYTHROMYCIN ESTOLATE
     Indication: PRODUCT USED FOR UNKNOWN INDICATION
     Route: 065
  18. HUMIRA [Suspect]
     Active Substance: ADALIMUMAB
     Indication: RHEUMATOID ARTHRITIS
     Route: 058
  19. BISOPROLOL [Suspect]
     Active Substance: BISOPROLOL
     Indication: PRODUCT USED FOR UNKNOWN INDICATION
     Route: 065
  20. METHOTREXATE [Suspect]
     Active Substance: METHOTREXATE
     Indication: RHEUMATOID ARTHRITIS
     Route: 048
  21. PREDNISONE. [Suspect]
     Active Substance: PREDNISONE
     Indication: RHEUMATOID ARTHRITIS
     Route: 065

REACTIONS (14)
  - Coagulopathy [Unknown]
  - Vomiting [Unknown]
  - Nausea [Unknown]
  - Multimorbidity [Unknown]
  - Drug intolerance [Unknown]
  - Multiple sclerosis [Unknown]
  - International normalised ratio fluctuation [Not Recovered/Not Resolved]
  - Joint swelling [Unknown]
  - Rheumatoid arthritis [Unknown]
  - Infection [Unknown]
  - Drug hypersensitivity [Unknown]
  - Hypersensitivity [Unknown]
  - Haemoptysis [Not Recovered/Not Resolved]
  - Fatigue [Unknown]
